FAERS Safety Report 10039445 (Version 1)
Quarter: 2014Q1

REPORT INFORMATION
  Report Type: Spontaneous
  Country: GB (occurrence: GB)
  Receive Date: 20140326
  Receipt Date: 20140326
  Transmission Date: 20141002
  Serious: Yes (Hospitalization)
  Sender: FDA-Public Use
  Company Number: GB-PFIZER INC-2014082257

PATIENT
  Age: 59 Year
  Sex: Female

DRUGS (10)
  1. METFORMIN HCL [Suspect]
     Indication: DIABETES MELLITUS
     Dosage: 1 G, 3X/DAY
     Route: 048
  2. DICLOFENAC [Suspect]
     Indication: ABDOMINAL PAIN
     Dosage: 75 MG, DAILY
     Route: 030
  3. AMLODIPINE [Concomitant]
     Dosage: UNK
     Route: 065
  4. BENDROFLUMETHIAZIDE [Concomitant]
     Dosage: UNK
     Route: 065
  5. CO-PROXAMOL [Concomitant]
     Dosage: UNK
     Route: 065
  6. LEVEMIR [Concomitant]
     Dosage: UNK
     Route: 065
  7. NOVORAPID [Concomitant]
     Dosage: UNK
     Route: 065
  8. OMEPRAZOLE [Concomitant]
     Dosage: UNK
     Route: 065
  9. PAROXETINE [Concomitant]
     Dosage: UNK
     Route: 065
  10. SIMVASTATIN [Concomitant]
     Dosage: UNK
     Route: 065

REACTIONS (2)
  - Renal failure acute [Recovering/Resolving]
  - Lactic acidosis [Recovering/Resolving]
